FAERS Safety Report 8547231-7 (Version None)
Quarter: 2012Q3

REPORT INFORMATION
  Report Type: 
  Country: None (occurrence: None)
  Receive Date: 20120727
  Receipt Date: 20120229
  Transmission Date: 20120928
  Serious: No
  Sender: FDA-Public Use
  Company Number: US-ASTRAZENECA-2012SE14078

PATIENT
  Age: 61 Year
  Sex: Male
  Weight: 90.7 kg

DRUGS (8)
  1. BUPROPION HYDROCHLORIDE [Concomitant]
  2. SEROQUEL [Suspect]
     Indication: SLEEP DISORDER
     Route: 048
     Dates: start: 20100101
  3. SEROQUEL [Suspect]
     Route: 048
  4. LISINOPRIL AND HYDROCHLOROTHIAZIDE [Concomitant]
  5. FLUVOXAMINE MALEATE [Concomitant]
  6. AMLODIPINE [Concomitant]
  7. SIMVASTATIN [Concomitant]
  8. METHYLPHENIDATE [Concomitant]
     Indication: ATTENTION DEFICIT/HYPERACTIVITY DISORDER

REACTIONS (5)
  - DRUG DOSE OMISSION [None]
  - INSOMNIA [None]
  - ANXIETY [None]
  - OFF LABEL USE [None]
  - NERVOUSNESS [None]
